FAERS Safety Report 7831816-7 (Version None)
Quarter: 2011Q4

REPORT INFORMATION
  Report Type: 
  Country: None (occurrence: None)
  Receive Date: 20111021
  Receipt Date: 20110907
  Transmission Date: 20120403
  Serious: Yes (Other)
  Sender: FDA-Public Use
  Company Number: US-AMGEN-KDC402675

PATIENT
  Age: 62 Year
  Sex: Female

DRUGS (22)
  1. DOCETAXEL [Concomitant]
     Indication: BREAST CANCER
     Dosage: 75 MG/M2, Q3WK
     Route: 042
     Dates: start: 20100128
  2. OMEPRAZOLE [Concomitant]
     Dosage: UNK UNK, UNK
     Route: 065
     Dates: start: 20090901
  3. LISINOPRIL [Concomitant]
     Indication: RENAL DISORDER
     Dosage: 5 MG, QD
     Route: 065
     Dates: start: 20020801
  4. NYSTATIN [Concomitant]
     Dosage: UNK UNK, UNK
     Route: 065
     Dates: start: 20100218
  5. METFORMIN HCL [Concomitant]
     Dosage: UNK
     Route: 065
     Dates: start: 20070809
  6. OXYCODONE HCL [Concomitant]
     Dosage: .25 MG, QD
     Route: 048
     Dates: start: 20100208, end: 20100208
  7. DEXAMETHASONE [Concomitant]
     Dosage: UNK UNK, UNK
     Route: 065
  8. ASPIRIN [Concomitant]
     Dosage: UNK UNK, UNK
     Route: 065
     Dates: start: 20070801
  9. ALPHA-D-GALACTOSIDASE [Concomitant]
     Dosage: UNK
     Dates: start: 20100202
  10. BEVACIZUMAB [Concomitant]
     Indication: BREAST CANCER
     Dosage: 15 MG/KG, Q3WK
     Route: 042
     Dates: start: 20100128
  11. ONDANSETRON HCL [Concomitant]
     Dosage: UNK UNK, UNK
     Route: 065
     Dates: start: 20100128
  12. LOPERAMIDE HCL [Concomitant]
     Dosage: UNK UNK, UNK
     Route: 065
     Dates: start: 20100202
  13. TRASTUZUMAB [Concomitant]
     Indication: BREAST CANCER
     Dosage: 8 MG/KG, Q3WK
     Route: 042
     Dates: start: 20100128
  14. CARBOPLATIN [Concomitant]
     Indication: BREAST CANCER
     Dosage: UNK UNK, Q3WK
     Route: 042
     Dates: start: 20100128
  15. FISH OIL [Concomitant]
     Dosage: UNK UNK, UNK
     Route: 065
     Dates: start: 20090901
  16. LORAZEPAM [Concomitant]
     Dosage: UNK UNK, UNK
     Route: 065
     Dates: start: 20100202
  17. GLIMEPIRIDE [Concomitant]
     Dosage: 2 MG, QD
     Dates: start: 20100128
  18. ACIDOPHILUS [Concomitant]
     Dosage: UNK UNK, UNK
     Route: 065
     Dates: start: 20100204
  19. PROCHLORPERAZINE [Concomitant]
     Dosage: UNK UNK, UNK
     Route: 065
     Dates: start: 20100128
  20. ENZYMES [Concomitant]
  21. PEGFILGRASTIM [Suspect]
     Indication: CHEMOTHERAPY
  22. FATTY ACID [Concomitant]
     Dosage: UNK UNK, UNK
     Route: 065

REACTIONS (2)
  - HYPERTENSION [None]
  - HYPERGLYCAEMIA [None]
